FAERS Safety Report 5944199-4 (Version None)
Quarter: 2008Q4

REPORT INFORMATION
  Report Type: 
  Country: None (occurrence: None)
  Receive Date: 20081106
  Receipt Date: 20081028
  Transmission Date: 20090506
  Serious: Yes (Hospitalization)
  Sender: FDA-Public Use
  Company Number: US-MERCK-0810USA05220

PATIENT
  Age: 46 Year
  Sex: Female
  Weight: 177 kg

DRUGS (14)
  1. PRINIVIL [Suspect]
     Indication: HYPERTENSION
     Route: 048
  2. HYDROCHLOROTHIAZIDE [Concomitant]
     Indication: HYPERTENSION
     Route: 048
  3. FUROSEMIDE [Suspect]
     Indication: HYPERTENSION
     Route: 065
  4. ATORVASTATIN [Concomitant]
     Indication: HYPERLIPIDAEMIA
     Route: 065
  5. OMEPRAZOLE [Concomitant]
     Indication: GASTROOESOPHAGEAL REFLUX DISEASE
     Route: 048
  6. FLUTICASONE PROPIONATE AND SALMETEROL XINAFOATE [Concomitant]
     Indication: ASTHMA
     Route: 065
  7. ALBUTEROL [Concomitant]
     Indication: ASTHMA
     Route: 065
  8. METFORMIN [Concomitant]
     Indication: TYPE 2 DIABETES MELLITUS
     Route: 065
  9. INSULIN LISPRO [Concomitant]
     Indication: TYPE 2 DIABETES MELLITUS
     Route: 065
  10. OXYCODONE [Concomitant]
     Indication: OSTEOARTHRITIS
     Route: 065
  11. OXYCODONE [Concomitant]
     Indication: BACK PAIN
     Route: 065
  12. ALPRAZOLAM [Concomitant]
     Indication: GENERALISED ANXIETY DISORDER
     Route: 065
  13. VENLAFAXINE HYDROCHLORIDE [Concomitant]
     Indication: DEPRESSION
     Route: 065
  14. GABAPENTIN [Suspect]
     Indication: DIABETIC NEUROPATHY
     Route: 065

REACTIONS (14)
  - ANURIA [None]
  - CHEST PAIN [None]
  - CONFUSIONAL STATE [None]
  - DEAFNESS BILATERAL [None]
  - DYSPNOEA [None]
  - HALLUCINATION [None]
  - HEADACHE [None]
  - HYPERHIDROSIS [None]
  - MYOCLONUS [None]
  - PNEUMONIA [None]
  - RENAL FAILURE [None]
  - RENAL TUBULAR NECROSIS [None]
  - URINARY TRACT INFECTION [None]
  - VISION BLURRED [None]
